FAERS Safety Report 6073547-2 (Version None)
Quarter: 2009Q1

REPORT INFORMATION
  Report Type: 
  Country: None (occurrence: None)
  Receive Date: 20090211
  Receipt Date: 20090206
  Transmission Date: 20090719
  Serious: Yes (Hospitalization)
  Sender: FDA-Public Use
  Company Number: FR-WYE-G03075509

PATIENT
  Sex: Male
  Weight: 34 kg

DRUGS (3)
  1. ADVIL [Suspect]
     Indication: PYREXIA
     Dosage: UNKNOWN
     Route: 048
     Dates: start: 20081225, end: 20081226
  2. IBUPROFEN TABLETS [Suspect]
     Indication: PYREXIA
     Dosage: UNKNOWN
     Route: 048
     Dates: start: 20081226
  3. DOLIPRANE [Concomitant]
     Indication: PYREXIA
     Dosage: UNKNOWN
     Route: 048
     Dates: start: 20081225

REACTIONS (10)
  - CONDITION AGGRAVATED [None]
  - GAIT DISTURBANCE [None]
  - GENERAL PHYSICAL HEALTH DETERIORATION [None]
  - INFLAMMATION [None]
  - INFLUENZA [None]
  - MUSCLE ATROPHY [None]
  - PNEUMONIA [None]
  - PNEUMOTHORAX [None]
  - POSTURE ABNORMAL [None]
  - PULMONARY PNEUMATOCELE [None]
